FAERS Safety Report 25346386 (Version 3)
Quarter: 2025Q2

REPORT INFORMATION
  Report Type: Spontaneous
  Country: JP (occurrence: JP)
  Receive Date: 20250522
  Receipt Date: 20250623
  Transmission Date: 20250716
  Serious: Yes (Death, Other)
  Sender: AMGEN
  Company Number: None

PATIENT
  Sex: Female

DRUGS (2)
  1. IVABRADINE HYDROCHLORIDE [Suspect]
     Active Substance: IVABRADINE HYDROCHLORIDE
     Indication: Cardiac failure chronic
     Route: 048
  2. IVABRADINE HYDROCHLORIDE [Suspect]
     Active Substance: IVABRADINE HYDROCHLORIDE
     Route: 048

REACTIONS (4)
  - Terminal state [Fatal]
  - Terminal state [Fatal]
  - Feeding disorder [Fatal]
  - Feeding disorder [Fatal]
